FAERS Safety Report 16719773 (Version 1)
Quarter: 2019Q3

REPORT INFORMATION
  Report Type: Spontaneous
  Country: CN (occurrence: CN)
  Receive Date: 20190820
  Receipt Date: 20190820
  Transmission Date: 20191005
  Serious: Yes (Other)
  Sender: FDA-Public Use
  Company Number: CN-PFIZER INC-2019355674

PATIENT
  Age: 79 Year
  Sex: Female
  Weight: 45 kg

DRUGS (2)
  1. MEPEM [Suspect]
     Active Substance: MEROPENEM
     Indication: HYPERTENSION
     Dosage: 1 G, 3X/DAY
     Route: 041
     Dates: start: 20190712, end: 20190714
  2. MEPEM [Suspect]
     Active Substance: MEROPENEM
     Indication: CEREBRAL HAEMORRHAGE
     Dosage: 0.5 G, 3X/DAY
     Route: 041
     Dates: start: 20190710, end: 20190711

REACTIONS (3)
  - Product use in unapproved indication [Unknown]
  - Drug eruption [Recovering/Resolving]
  - Off label use [Unknown]

NARRATIVE: CASE EVENT DATE: 20190710
